FAERS Safety Report 9364466 (Version 2)
Quarter: 2013Q3

REPORT INFORMATION
  Report Type: Spontaneous
  Country: FR (occurrence: FR)
  Receive Date: 20130624
  Receipt Date: 20130911
  Transmission Date: 20140515
  Serious: Yes (Other)
  Sender: FDA-Public Use
  Company Number: FR-TEVA-414571ISR

PATIENT
  Age: 86 Year
  Sex: Female

DRUGS (1)
  1. FUROSEMIDE TEVA [Suspect]

REACTIONS (3)
  - Urinary retention [Unknown]
  - Balance disorder [Unknown]
  - Tremor [Unknown]
